FAERS Safety Report 17229419 (Version 1)
Quarter: 2020Q1

REPORT INFORMATION
  Report Type: Spontaneous
  Country: FR (occurrence: FR)
  Receive Date: 20200103
  Receipt Date: 20200103
  Transmission Date: 20200409
  Serious: Yes (Death, Hospitalization, Other)
  Sender: FDA-Public Use
  Company Number: FR-TAKEDA-2019TEU016017

PATIENT
  Age: 57 Year
  Sex: Female
  Weight: 61.5 kg

DRUGS (4)
  1. METHOTREXATE. [Interacting]
     Active Substance: METHOTREXATE
     Indication: GRAFT VERSUS HOST DISEASE
     Dosage: 25 MILLIGRAM, 1/WEEK
     Route: 048
     Dates: start: 20191122, end: 20191129
  2. LANSOPRAZOLE. [Suspect]
     Active Substance: LANSOPRAZOLE
     Indication: GASTROINTESTINAL DISORDER PROPHYLAXIS
     Dosage: 15 MILLIGRAM, QD
     Route: 048
     Dates: start: 20191128, end: 20191206
  3. NEORAL [Interacting]
     Active Substance: CYCLOSPORINE
     Indication: GRAFT VERSUS HOST DISEASE
     Dosage: 50 MILLIGRAM, QD
     Route: 048
     Dates: start: 2015, end: 20191206
  4. CLAMOXYL (AMOXICILLIN TRIHYDRATE) [Interacting]
     Active Substance: AMOXICILLIN
     Indication: ANTIBIOTIC PROPHYLAXIS
     Dosage: 500 MILLIGRAM, QD
     Route: 048
     Dates: start: 201811, end: 20191206

REACTIONS (3)
  - Agranulocytosis [Fatal]
  - Drug interaction [Unknown]
  - Pneumonia [Fatal]

NARRATIVE: CASE EVENT DATE: 20191204
